FAERS Safety Report 25948853 (Version 1)
Quarter: 2025Q4

REPORT INFORMATION
  Report Type: Spontaneous
  Country: EU (occurrence: EU)
  Receive Date: 20251022
  Receipt Date: 20251022
  Transmission Date: 20260118
  Serious: Yes (Death, Other)
  Sender: ELI LILLY AND COMPANY
  Company Number: None

PATIENT
  Age: 55 Year
  Sex: Female
  Weight: 74.7 kg

DRUGS (12)
  1. ABEMACICLIB [Suspect]
     Active Substance: ABEMACICLIB
     Indication: Breast cancer
     Dosage: 150 MG, BID
     Route: 048
     Dates: start: 20240627, end: 20240821
  2. ABEMACICLIB [Suspect]
     Active Substance: ABEMACICLIB
     Dosage: 100 MG, BID
     Route: 048
     Dates: start: 20240822, end: 20241017
  3. LEVOTHYROXINE [Concomitant]
     Active Substance: LEVOTHYROXINE
     Indication: Hypothyroidism
     Dosage: 100 UG, DAILY
     Route: 048
     Dates: end: 20241228
  4. DAPAGLIFLOZIN [Concomitant]
     Active Substance: DAPAGLIFLOZIN
     Indication: Cardiac failure
     Dosage: 10 MG, DAILY
     Route: 048
     Dates: end: 20240912
  5. WARFARIN SODIUM [Concomitant]
     Active Substance: WARFARIN SODIUM
     Indication: Atrial fibrillation
     Dosage: 4 MG, DAILY
     Route: 048
     Dates: end: 20241228
  6. FUROSEMIDE [Concomitant]
     Active Substance: FUROSEMIDE
     Indication: Hypertension
     Dosage: 60 MG, DAILY
     Route: 048
     Dates: end: 20241228
  7. FUROSEMIDE [Concomitant]
     Active Substance: FUROSEMIDE
     Dosage: 40 MG, DAILY
     Route: 065
  8. FUROSEMIDE [Concomitant]
     Active Substance: FUROSEMIDE
     Dosage: 20 MG, UNKNOWN
     Route: 065
  9. POTASSIUM CHLORIDE [Concomitant]
     Active Substance: POTASSIUM CHLORIDE
     Indication: Mineral supplementation
     Dosage: 600 MG, EVERY 8 HRS
     Route: 048
     Dates: end: 20241228
  10. ALLOPURINOL [Concomitant]
     Active Substance: ALLOPURINOL
     Indication: Hyperuricaemia
     Dosage: 100 MG, DAILY
     Route: 048
     Dates: end: 20241105
  11. TAHOR [Concomitant]
     Active Substance: ATORVASTATIN CALCIUM
     Indication: Cardiovascular event prophylaxis
     Dosage: 20 MG, DAILY
     Route: 048
     Dates: end: 20241228
  12. ARIMIDEX [Concomitant]
     Active Substance: ANASTROZOLE
     Indication: Breast cancer
     Dosage: 1 MG, DAILY
     Route: 048
     Dates: end: 20241228

REACTIONS (8)
  - Hypotension [Fatal]
  - Asthenia [Fatal]
  - Acute kidney injury [Fatal]
  - Condition aggravated [Fatal]
  - Metabolic acidosis [Fatal]
  - Pulmonary oedema [Fatal]
  - Diarrhoea [Fatal]
  - Fatigue [Unknown]

NARRATIVE: CASE EVENT DATE: 20240704
